FAERS Safety Report 15148881 (Version 2)
Quarter: 2018Q3

REPORT INFORMATION
  Report Type: Spontaneous
  Country: JP (occurrence: JP)
  Receive Date: 20180716
  Receipt Date: 20180904
  Transmission Date: 20181010
  Serious: Yes (Death)
  Sender: FDA-Public Use
  Company Number: JP-JNJFOC-20180717635

PATIENT
  Sex: Female

DRUGS (4)
  1. XARELTO [Suspect]
     Active Substance: RIVAROXABAN
     Indication: ATRIAL FIBRILLATION
     Route: 048
  2. UROKINASE [Interacting]
     Active Substance: UROKINASE
     Indication: PRODUCT USED FOR UNKNOWN INDICATION
     Dosage: 12X10^4 UNITS
     Route: 022
     Dates: start: 20180706, end: 20180707
  3. HEPARIN [Suspect]
     Active Substance: HEPARIN SODIUM
     Indication: PRODUCT USED FOR UNKNOWN INDICATION
     Route: 040
     Dates: start: 20180706, end: 20180707
  4. XARELTO [Suspect]
     Active Substance: RIVAROXABAN
     Indication: CEREBROVASCULAR ACCIDENT PROPHYLAXIS
     Route: 048

REACTIONS (5)
  - Labelled drug-drug interaction medication error [Fatal]
  - Blood pressure decreased [Unknown]
  - Haemorrhagic cerebral infarction [Fatal]
  - Glossoptosis [Unknown]
  - Embolic stroke [Fatal]

NARRATIVE: CASE EVENT DATE: 20180706
